FAERS Safety Report 4949691-7 (Version None)
Quarter: 2006Q1

REPORT INFORMATION
  Report Type: 
  Country: None (occurrence: None)
  Receive Date: 20060315
  Receipt Date: 20060303
  Transmission Date: 20060701
  Serious: Yes (Death)
  Sender: FDA-Public Use
  Company Number: CLOF-10203

PATIENT
  Age: 77 Year
  Sex: Female

DRUGS (2)
  1. CLOFARABINE [Suspect]
     Indication: ACUTE MYELOID LEUKAEMIA
     Dosage: 30 MG/M2 QD X 5 IV
     Route: 042
  2. CYTARABINE [Suspect]
     Indication: ACUTE MYELOID LEUKAEMIA
     Dosage: 100 MG/M2 QD IV
     Route: 042

REACTIONS (4)
  - BONE MARROW FAILURE [None]
  - CANDIDIASIS [None]
  - CAPILLARY LEAK SYNDROME [None]
  - NEPHROPATHY TOXIC [None]
